FAERS Safety Report 22644616 (Version 2)
Quarter: 2023Q2

REPORT INFORMATION
  Report Type: Report from Study
  Country: AE (occurrence: None)
  Receive Date: 20230627
  Receipt Date: 20230629
  Transmission Date: 20230722
  Serious: Yes (Hospitalization)
  Sender: FDA-Public Use
  Company Number: 2023A134616

PATIENT
  Age: 58 Year
  Sex: Female
  Weight: 58.7 kg

DRUGS (2)
  1. CILGAVIMAB\TIXAGEVIMAB [Suspect]
     Active Substance: CILGAVIMAB\TIXAGEVIMAB
     Indication: COVID-19 treatment
     Dosage: 6 ML ONCE/SINGLE ADMINISTRATION
     Route: 030
     Dates: start: 20230404
  2. METFORMIN\SITAGLIPTIN [Concomitant]
     Active Substance: METFORMIN\SITAGLIPTIN
     Indication: Diabetes mellitus
     Route: 048
     Dates: start: 20180101

REACTIONS (1)
  - Myelodysplastic syndrome with excess blasts [Recovered/Resolved]

NARRATIVE: CASE EVENT DATE: 20230512
